FAERS Safety Report 9580427 (Version 1)
Quarter: 2013Q4

REPORT INFORMATION
  Report Type: Spontaneous
  Country: US (occurrence: None)
  Receive Date: 20131001
  Receipt Date: 20131001
  Transmission Date: 20140711
  Serious: No
  Sender: FDA-Public Use
  Company Number: None

PATIENT
  Age: 59 Year
  Sex: Male

DRUGS (1)
  1. LENALIDOMIDE [Suspect]
     Indication: PLASMA CELL MYELOMA
     Route: 048
     Dates: start: 20130416

REACTIONS (6)
  - Nausea [None]
  - Vomiting [None]
  - Abdominal pain upper [None]
  - Hyperkalaemia [None]
  - Electrocardiogram T wave peaked [None]
  - Supraventricular extrasystoles [None]
